FAERS Safety Report 11914149 (Version 2)
Quarter: 2016Q1

REPORT INFORMATION
  Report Type: Spontaneous
  Country: GB (occurrence: GB)
  Receive Date: 20160113
  Receipt Date: 20160204
  Transmission Date: 20160526
  Serious: Yes (Hospitalization, Other)
  Sender: FDA-Public Use
  Company Number: GB-ASTRAZENECA-2016SE00851

PATIENT
  Age: 60 Year
  Sex: Female

DRUGS (10)
  1. GABAPENTIN. [Concomitant]
     Active Substance: GABAPENTIN
  2. BYDUREON [Suspect]
     Active Substance: EXENATIDE
     Indication: TYPE 2 DIABETES MELLITUS
     Route: 058
     Dates: start: 201505
  3. PARACETAMOL [Concomitant]
     Active Substance: ACETAMINOPHEN
  4. METFORMIN [Concomitant]
     Active Substance: METFORMIN HYDROCHLORIDE
  5. NAPROXEN. [Concomitant]
     Active Substance: NAPROXEN
  6. ASPIRIN. [Concomitant]
     Active Substance: ASPIRIN
  7. FULTIUM-D3 [Concomitant]
  8. LEVOTHYROXINE. [Concomitant]
     Active Substance: LEVOTHYROXINE
  9. BUPRENORPHINE. [Concomitant]
     Active Substance: BUPRENORPHINE
  10. ALENDRONIC ACID [Concomitant]
     Active Substance: ALENDRONIC ACID

REACTIONS (4)
  - Blood blister [Unknown]
  - Incorrect route of drug administration [Unknown]
  - Skin ulcer [Unknown]
  - Blood potassium increased [Unknown]
